FAERS Safety Report 18879873 (Version 1)
Quarter: 2021Q1

REPORT INFORMATION
  Report Type: Spontaneous
  Country: US (occurrence: US)
  Receive Date: 20210211
  Receipt Date: 20210211
  Transmission Date: 20210420
  Serious: No
  Sender: FDA-Public Use
  Company Number: US-TAKEDA-2021TUS006129

PATIENT
  Age: 49 Year
  Sex: Female
  Weight: 111 kg

DRUGS (2)
  1. VYVANSE [Suspect]
     Active Substance: LISDEXAMFETAMINE DIMESYLATE
     Indication: ATTENTION DEFICIT HYPERACTIVITY DISORDER
  2. VYVANSE [Suspect]
     Active Substance: LISDEXAMFETAMINE DIMESYLATE
     Indication: BINGE EATING
     Route: 065

REACTIONS (2)
  - No adverse event [Unknown]
  - Product availability issue [Unknown]

NARRATIVE: CASE EVENT DATE: 20210121
